FAERS Safety Report 13825767 (Version 6)
Quarter: 2018Q1

REPORT INFORMATION
  Report Type: Report from Study
  Country: US (occurrence: US)
  Receive Date: 20170802
  Receipt Date: 20180215
  Transmission Date: 20180508
  Serious: Yes (Hospitalization)
  Sender: FDA-Public Use
  Company Number: US-ACTELION-A-US2017-157385

PATIENT
  Age: 49 Year
  Sex: Male

DRUGS (1)
  1. OPSUMIT [Suspect]
     Active Substance: MACITENTAN
     Indication: PULMONARY ARTERIAL HYPERTENSION
     Dosage: 10 MG, QD
     Route: 048
     Dates: start: 20170612

REACTIONS (12)
  - Peripheral artery angioplasty [Unknown]
  - Nasal congestion [Unknown]
  - Headache [Unknown]
  - Peripheral vascular disorder [Recovered/Resolved with Sequelae]
  - Catheterisation cardiac [Unknown]
  - Synovial cyst removal [Unknown]
  - Neuralgia [Unknown]
  - Epistaxis [Unknown]
  - Pain in extremity [Recovered/Resolved with Sequelae]
  - Oedema peripheral [Unknown]
  - Thrombosis [Unknown]
  - Gait disturbance [Recovered/Resolved with Sequelae]

NARRATIVE: CASE EVENT DATE: 2017
